FAERS Safety Report 14523376 (Version 1)
Quarter: 2018Q1

REPORT INFORMATION
  Report Type: Spontaneous
  Country: JP (occurrence: JP)
  Receive Date: 20180212
  Receipt Date: 20180212
  Transmission Date: 20180509
  Serious: Yes (Death)
  Sender: FDA-Public Use
  Company Number: JP-ELI_LILLY_AND_COMPANY-JP201802003712

PATIENT
  Age: 80 Year
  Sex: Male
  Weight: 56 kg

DRUGS (9)
  1. CARBOPLATIN. [Concomitant]
     Active Substance: CARBOPLATIN
     Indication: SQUAMOUS CELL CARCINOMA OF THE TONGUE
     Dosage: 5 MG, UNKNOWN
     Route: 041
     Dates: start: 20150114, end: 20150114
  2. ERBITUX [Suspect]
     Active Substance: CETUXIMAB
     Indication: SQUAMOUS CELL CARCINOMA OF THE TONGUE
     Dosage: 400 MG, UNKNOWN
     Route: 041
     Dates: start: 20150114, end: 20150114
  3. 5-FU                               /00098801/ [Concomitant]
     Active Substance: FLUOROURACIL
     Dosage: 1000 MG, UNKNOWN
     Route: 041
     Dates: start: 20150218, end: 20150618
  4. ERBITUX [Suspect]
     Active Substance: CETUXIMAB
     Dosage: UNK UNK, UNKNOWN
     Route: 041
     Dates: start: 20150715
  5. CARBOPLATIN. [Concomitant]
     Active Substance: CARBOPLATIN
     Dosage: UNK, UNKNOWN
     Route: 041
     Dates: start: 20150218, end: 20150618
  6. 5-FU                               /00098801/ [Concomitant]
     Active Substance: FLUOROURACIL
     Indication: SQUAMOUS CELL CARCINOMA OF THE TONGUE
     Dosage: 1000 MG, UNKNOWN
     Route: 041
     Dates: start: 20150114, end: 20150117
  7. ZOMETA [Concomitant]
     Active Substance: ZOLEDRONIC ACID
     Indication: PRODUCT USED FOR UNKNOWN INDICATION
     Dosage: UNK, UNKNOWN
     Route: 065
     Dates: start: 20150716
  8. ERBITUX [Suspect]
     Active Substance: CETUXIMAB
     Dosage: 250 MG, UNK
     Route: 041
     Dates: start: 20150218, end: 20150604
  9. PACLITAXEL. [Concomitant]
     Active Substance: PACLITAXEL
     Indication: SQUAMOUS CELL CARCINOMA OF THE TONGUE
     Dosage: UNK, UNKNOWN
     Route: 065
     Dates: start: 20150715

REACTIONS (2)
  - Acute respiratory distress syndrome [Fatal]
  - Off label use [Unknown]

NARRATIVE: CASE EVENT DATE: 20150731
